FAERS Safety Report 7482785-3 (Version None)
Quarter: 2011Q2

REPORT INFORMATION
  Report Type: 
  Country: None (occurrence: None)
  Receive Date: 20110516
  Receipt Date: 20110511
  Transmission Date: 20111010
  Serious: Yes (Other)
  Sender: FDA-Public Use
  Company Number: US-PFIZER INC-2007036876

PATIENT
  Sex: Female

DRUGS (2)
  1. NEURONTIN [Suspect]
     Indication: ARTHRITIS
     Dosage: 300 MG, UNK
     Dates: start: 19980511
  2. NEURONTIN [Suspect]
     Indication: PAIN IN EXTREMITY
     Dosage: UNK
     Dates: start: 20020101

REACTIONS (12)
  - HEART RATE INCREASED [None]
  - HALLUCINATION, AUDITORY [None]
  - SUICIDE ATTEMPT [None]
  - HALLUCINATION [None]
  - HALLUCINATION, VISUAL [None]
  - DEPRESSION [None]
  - THROMBOSIS [None]
  - THINKING ABNORMAL [None]
  - PARANOIA [None]
  - CHEST PAIN [None]
  - DRUG INEFFECTIVE FOR UNAPPROVED INDICATION [None]
  - CRYING [None]
